FAERS Safety Report 8164495-2 (Version None)
Quarter: 2012Q1

REPORT INFORMATION
  Report Type: 
  Country: None (occurrence: None)
  Receive Date: 20120224
  Receipt Date: 20120222
  Transmission Date: 20120608
  Serious: Yes (Death)
  Sender: FDA-Public Use
  Company Number: US-ABBOTT-12P-163-0907496-00

PATIENT
  Sex: Male

DRUGS (5)
  1. DEXAMETHASONE [Concomitant]
     Indication: PRODUCT USED FOR UNKNOWN INDICATION
  2. ZANTAC [Concomitant]
     Indication: PRODUCT USED FOR UNKNOWN INDICATION
  3. LUPRON DEPOT [Suspect]
     Indication: PROSTATE CANCER
     Route: 030
     Dates: start: 20060101, end: 20111101
  4. REMURON [Concomitant]
     Indication: PRODUCT USED FOR UNKNOWN INDICATION
  5. VICODIN [Concomitant]
     Indication: PRODUCT USED FOR UNKNOWN INDICATION
     Dosage: 5/500

REACTIONS (1)
  - PROSTATE CANCER METASTATIC [None]
